FAERS Safety Report 21690276 (Version 1)
Quarter: 2022Q4

REPORT INFORMATION
  Report Type: Spontaneous
  Country: US (occurrence: US)
  Receive Date: 20221206
  Receipt Date: 20221206
  Transmission Date: 20230112
  Serious: No
  Sender: FDA-Public Use
  Company Number: US-BRAINTREE LABORATORIES, INC.-2022BTE00887

PATIENT
  Age: 39 Year
  Sex: Female

DRUGS (3)
  1. SUTAB [Suspect]
     Active Substance: MAGNESIUM SULFATE\POTASSIUM CHLORIDE\SODIUM SULFATE
     Indication: Colonoscopy
     Dosage: 2 X 12 TABLETS, 1X
     Route: 048
     Dates: start: 20221019, end: 20221020
  2. TYLENOL [Concomitant]
     Active Substance: ACETAMINOPHEN
     Dosage: 1000 MG, TWICE
     Route: 048
     Dates: start: 20221019, end: 20221019
  3. MAGNESIUM [Concomitant]
     Active Substance: MAGNESIUM
     Dosage: 500-1000 MG, 1X/DAY
     Route: 048
     Dates: end: 20221019

REACTIONS (1)
  - Vomiting [Recovered/Resolved]

NARRATIVE: CASE EVENT DATE: 20221020
